FAERS Safety Report 5846993-7 (Version None)
Quarter: 2008Q3

REPORT INFORMATION
  Report Type: 
  Country: None (occurrence: None)
  Receive Date: 20080815
  Receipt Date: 20080807
  Transmission Date: 20090109
  Serious: Yes (Hospitalization)
  Sender: FDA-Public Use
  Company Number: DE-ROCHE-580394

PATIENT
  Sex: Female
  Weight: 71 kg

DRUGS (7)
  1. INTERFERON ALFA-2A [Suspect]
     Indication: METASTATIC RENAL CELL CARCINOMA
     Dosage: DOSE: 18 MIU FORM: LIQUID
     Route: 058
     Dates: start: 20080722
  2. BEVACIZUMAB [Suspect]
     Indication: METASTATIC RENAL CELL CARCINOMA
     Dosage: FORM: LIQUID
     Route: 042
     Dates: start: 20080722
  3. VINBLASTINE SULFATE [Suspect]
     Indication: METASTATIC RENAL CELL CARCINOMA
     Dosage: FORM: LIQUID
     Route: 042
     Dates: start: 20080722
  4. ENALAPRIL MALEATE [Concomitant]
     Dates: start: 20030101
  5. PANTOZOL [Concomitant]
  6. TOREM [Concomitant]
     Dates: start: 20080601
  7. LEVOTHYROXINE SODIUM [Concomitant]
     Dates: start: 19780101

REACTIONS (1)
  - GENERAL PHYSICAL HEALTH DETERIORATION [None]
